FAERS Safety Report 6348119-2 (Version None)
Quarter: 2009Q3

REPORT INFORMATION
  Report Type: 
  Country: None (occurrence: None)
  Receive Date: 20090910
  Receipt Date: 20090903
  Transmission Date: 20100115
  Serious: Yes (Other)
  Sender: FDA-Public Use
  Company Number: GB-AMGEN-QUU360785

PATIENT
  Sex: Male

DRUGS (3)
  1. NEULASTA [Suspect]
     Indication: CHEMOTHERAPY
     Route: 058
     Dates: start: 20090722, end: 20090818
  2. UNSPECIFIED ANTINEOPLASTIC AGENT [Concomitant]
  3. MITOXANTRONE [Concomitant]
     Route: 058
     Dates: start: 20090722, end: 20090818

REACTIONS (8)
  - BACK PAIN [None]
  - BLOOD PRESSURE DECREASED [None]
  - DYSPNOEA [None]
  - HEADACHE [None]
  - HYPOVENTILATION [None]
  - MALAISE [None]
  - PULSE PRESSURE DECREASED [None]
  - RESPIRATORY DISORDER [None]
